FAERS Safety Report 6370647-4 (Version None)
Quarter: 2009Q3

REPORT INFORMATION
  Report Type: 
  Country: None (occurrence: None)
  Receive Date: 20090921
  Receipt Date: 20090921
  Transmission Date: 20100115
  Serious: Yes (Hospitalization)
  Sender: FDA-Public Use
  Company Number: None

PATIENT
  Sex: Male
  Weight: 26.5 kg

DRUGS (8)
  1. CYCLOPHOSPHAMIDE [Suspect]
     Dosage: 950 MG
  2. CYTARABINE [Suspect]
     Dosage: 560 MG
  3. DEXAMETHASONE [Suspect]
     Dosage: 133 MG
  4. DOXORUBICIN HCL [Suspect]
     Dosage: 72 MG
  5. METHOTREXATE [Suspect]
     Dosage: 24 MG
  6. ONCASPAR [Suspect]
     Dosage: 2375 MG
  7. THIOGUANINE [Suspect]
     Dosage: 800 MG
  8. VINCRISTINE SULFATE [Suspect]
     Dosage: 4.2 MG

REACTIONS (24)
  - ABDOMINAL DISTENSION [None]
  - ACTIVATED PARTIAL THROMBOPLASTIN TIME PROLONGED [None]
  - ALANINE AMINOTRANSFERASE INCREASED [None]
  - AMMONIA INCREASED [None]
  - ASPARTATE AMINOTRANSFERASE INCREASED [None]
  - BLOOD BILIRUBIN INCREASED [None]
  - BLOOD CREATINE DECREASED [None]
  - BRAIN DEATH [None]
  - BRAIN HERNIATION [None]
  - BRAIN INJURY [None]
  - DEPRESSED LEVEL OF CONSCIOUSNESS [None]
  - FIBRIN D DIMER INCREASED [None]
  - HEPATOMEGALY [None]
  - HYPOXIA [None]
  - INTERNATIONAL NORMALISED RATIO INCREASED [None]
  - PLATELET COUNT DECREASED [None]
  - PLEURAL EFFUSION [None]
  - PROTHROMBIN TIME PROLONGED [None]
  - PYREXIA [None]
  - RESPIRATORY DISTRESS [None]
  - RETROGRADE PORTAL VEIN FLOW [None]
  - TACHYPNOEA [None]
  - VENOOCCLUSIVE DISEASE [None]
  - WEIGHT INCREASED [None]
